APPROVED DRUG PRODUCT: TARGRETIN
Active Ingredient: BEXAROTENE
Strength: 75MG
Dosage Form/Route: CAPSULE;ORAL
Application: N021055 | Product #001 | TE Code: AB
Applicant: BAUSCH HEALTH IRELAND LTD
Approved: Dec 29, 1999 | RLD: Yes | RS: Yes | Type: RX